FAERS Safety Report 21207247 (Version 1)
Quarter: 2022Q3

REPORT INFORMATION
  Report Type: Spontaneous
  Country: US (occurrence: None)
  Receive Date: 20220811
  Receipt Date: 20220811
  Transmission Date: 20221026
  Serious: Yes (Hospitalization)
  Sender: FDA-Public Use
  Company Number: None

PATIENT
  Age: 82 Year
  Sex: Female

DRUGS (1)
  1. ERLOTINIB [Suspect]
     Active Substance: ERLOTINIB
     Dosage: 100MG DAIL ORAL
     Route: 048

REACTIONS (5)
  - Rash [None]
  - Eyelid margin crusting [None]
  - Eyelid margin crusting [None]
  - Renal impairment [None]
  - Hospice care [None]

NARRATIVE: CASE EVENT DATE: 20220811
